FAERS Safety Report 14183610 (Version 4)
Quarter: 2017Q4

REPORT INFORMATION
  Report Type: Spontaneous
  Country: US (occurrence: US)
  Receive Date: 20171113
  Receipt Date: 20171218
  Transmission Date: 20180321
  Serious: No
  Sender: FDA-Public Use
  Company Number: US-ASTRAZENECA-2017SF09713

PATIENT
  Age: 72 Year
  Sex: Female
  Weight: 62.1 kg

DRUGS (2)
  1. LYNPARZA [Suspect]
     Active Substance: OLAPARIB
     Indication: OVARIAN CANCER
     Dosage: TWO 150MG TABLETS TWICE A DAY THAT SHE TAKES AT 10AM AND 10PM
     Route: 048
     Dates: start: 201708
  2. LYNPARZA [Suspect]
     Active Substance: OLAPARIB
     Indication: OVARIAN CANCER
     Dosage: TWO 150MG TABLETS TWICE A DAY THAT SHE TAKES AT 10AM AND 10PM
     Route: 048
     Dates: start: 20171206

REACTIONS (6)
  - Ascites [Not Recovered/Not Resolved]
  - Drug dose omission [Recovered/Resolved]
  - Dysgeusia [Recovered/Resolved]
  - Nausea [Unknown]
  - Weight decreased [Unknown]
  - Drug dispensing error [Unknown]

NARRATIVE: CASE EVENT DATE: 2017
